FAERS Safety Report 19646498 (Version 1)
Quarter: 2021Q3

REPORT INFORMATION
  Report Type: Spontaneous
  Country: US (occurrence: US)
  Receive Date: 20210802
  Receipt Date: 20210802
  Transmission Date: 20211014
  Serious: Yes (Hospitalization)
  Sender: FDA-Public Use
  Company Number: US-VIFOR (INTERNATIONAL) INC.-VIT-2021-06317

PATIENT
  Age: 62 Year
  Sex: Female
  Weight: 110.7 kg

DRUGS (1)
  1. MIRCERA [Suspect]
     Active Substance: METHOXY POLYETHYLENE GLYCOL-EPOETIN BETA
     Indication: ANAEMIA
     Route: 040
     Dates: start: 20210720, end: 20210720

REACTIONS (6)
  - Abdominal pain upper [Unknown]
  - Hypotension [Unknown]
  - Drug hypersensitivity [Unknown]
  - Nausea [Unknown]
  - Vision blurred [Unknown]
  - Feeling hot [Unknown]

NARRATIVE: CASE EVENT DATE: 20210720
